FAERS Safety Report 20825747 (Version 1)
Quarter: 2022Q2

REPORT INFORMATION
  Report Type: Spontaneous
  Country: CA (occurrence: CA)
  Receive Date: 20220513
  Receipt Date: 20220513
  Transmission Date: 20220720
  Serious: Yes (Other)
  Sender: FDA-Public Use
  Company Number: CA-BRISTOL-MYERS SQUIBB COMPANY-2022-038764

PATIENT
  Age: 78 Year
  Sex: Male

DRUGS (5)
  1. ELIQUIS [Suspect]
     Active Substance: APIXABAN
     Indication: Cerebrovascular accident prophylaxis
     Route: 048
  2. ALLOPURINOL [Concomitant]
     Active Substance: ALLOPURINOL
     Indication: Product used for unknown indication
  3. CANDESARTAN [Concomitant]
     Active Substance: CANDESARTAN
     Indication: Product used for unknown indication
  4. INDAPAMIDE [Concomitant]
     Active Substance: INDAPAMIDE
     Indication: Product used for unknown indication
  5. METOPROLOL [Concomitant]
     Active Substance: METOPROLOL
     Indication: Product used for unknown indication

REACTIONS (15)
  - Agitation [Unknown]
  - Blood pressure increased [Unknown]
  - Cerebellar haemorrhage [Unknown]
  - Cerebral disorder [Unknown]
  - Delirium [Unknown]
  - Depressed level of consciousness [Unknown]
  - Dizziness [Unknown]
  - Ear pain [Unknown]
  - Eye pain [Unknown]
  - Headache [Unknown]
  - Cerebral haematoma [Unknown]
  - Nausea [Unknown]
  - Nystagmus [Unknown]
  - Post procedural complication [Unknown]
  - Staphylococcal infection [Unknown]
